FAERS Safety Report 23427606 (Version 1)
Quarter: 2024Q1

REPORT INFORMATION
  Report Type: Spontaneous
  Country: US (occurrence: US)
  Receive Date: 20240122
  Receipt Date: 20240122
  Transmission Date: 20240410
  Serious: Yes (Death)
  Sender: FDA-Public Use
  Company Number: US-PFIZER INC-202400019701

PATIENT
  Age: 51 Year
  Sex: Male

DRUGS (6)
  1. CIPROFLOXACIN [Suspect]
     Active Substance: CIPROFLOXACIN
     Indication: Serratia infection
     Dosage: UNK
  2. CIPROFLOXACIN [Suspect]
     Active Substance: CIPROFLOXACIN
     Indication: Necrotising fasciitis
  3. CLINDAMYCIN [Suspect]
     Active Substance: CLINDAMYCIN
     Indication: Serratia infection
     Dosage: UNK
  4. CLINDAMYCIN [Suspect]
     Active Substance: CLINDAMYCIN
     Indication: Necrotising fasciitis
  5. VANCOMYCIN HYDROCHLORIDE [Suspect]
     Active Substance: VANCOMYCIN HYDROCHLORIDE
     Indication: Serratia infection
     Dosage: UNK
  6. VANCOMYCIN HYDROCHLORIDE [Suspect]
     Active Substance: VANCOMYCIN HYDROCHLORIDE
     Indication: Necrotising fasciitis

REACTIONS (2)
  - Off label use [Fatal]
  - Drug ineffective for unapproved indication [Fatal]
